FAERS Safety Report 17721414 (Version 3)
Quarter: 2020Q2

REPORT INFORMATION
  Report Type: Report from Study
  Country: None (occurrence: US)
  Receive Date: 20200429
  Receipt Date: 20200526
  Transmission Date: 20200714
  Serious: Yes (Hospitalization)
  Sender: FDA-Public Use
  Company Number: US-ABBVIE-19K-163-2778442-00

PATIENT
  Age: 29 Year
  Sex: Female
  Weight: 69.46 kg

DRUGS (3)
  1. HUMIRA [Suspect]
     Active Substance: ADALIMUMAB
     Indication: COLITIS ULCERATIVE
     Dosage: DAY 1
     Route: 058
     Dates: start: 20190425, end: 20190425
  2. HUMIRA [Suspect]
     Active Substance: ADALIMUMAB
     Dosage: DAY 15
     Route: 058
     Dates: start: 20190510, end: 20190510
  3. HUMIRA [Suspect]
     Active Substance: ADALIMUMAB
     Route: 058
     Dates: start: 20190524, end: 20200415

REACTIONS (32)
  - Loss of personal independence in daily activities [Recovering/Resolving]
  - Diarrhoea haemorrhagic [Unknown]
  - Anxiety [Unknown]
  - Depression [Unknown]
  - Chronic gastritis [Unknown]
  - Appendicitis [Unknown]
  - Helicobacter infection [Not Recovered/Not Resolved]
  - Fatigue [Not Recovered/Not Resolved]
  - Abdominal pain [Recovered/Resolved]
  - Faeces soft [Unknown]
  - Haemorrhoidal haemorrhage [Unknown]
  - Colitis ulcerative [Unknown]
  - Rectal haemorrhage [Recovered/Resolved]
  - Alopecia [Not Recovered/Not Resolved]
  - Vomiting [Recovered/Resolved]
  - Hypophagia [Unknown]
  - Nausea [Recovered/Resolved]
  - Mucous stools [Unknown]
  - Diarrhoea [Recovering/Resolving]
  - Colitis [Unknown]
  - Diarrhoea [Recovered/Resolved]
  - Nausea [Recovered/Resolved]
  - Cholecystectomy [Unknown]
  - Fatigue [Recovered/Resolved]
  - Malaise [Not Recovered/Not Resolved]
  - Injection site bruising [Unknown]
  - Diarrhoea [Recovered/Resolved]
  - Rectal haemorrhage [Recovering/Resolving]
  - Cough [Unknown]
  - Pyrexia [Not Recovered/Not Resolved]
  - Abdominal pain [Recovered/Resolved]
  - Vomiting [Unknown]

NARRATIVE: CASE EVENT DATE: 2019
